FAERS Safety Report 8130037-0 (Version None)
Quarter: 2012Q1

REPORT INFORMATION
  Report Type: 
  Country: None (occurrence: None)
  Receive Date: 20120210
  Receipt Date: 20120206
  Transmission Date: 20120608
  Serious: Yes (Other)
  Sender: FDA-Public Use
  Company Number: US-PFIZER INC-2012032106

PATIENT
  Age: 7 Year
  Sex: Female

DRUGS (2)
  1. ZOLOFT [Suspect]
     Dosage: 25MG/DAY
     Dates: start: 20080101
  2. ZOLOFT [Suspect]
     Indication: ANXIETY DISORDER
     Dosage: 12.5 MG, UNK
     Dates: start: 20080101

REACTIONS (1)
  - BENIGN INTRACRANIAL HYPERTENSION [None]
